FAERS Safety Report 9425112 (Version 1)
Quarter: 2013Q3

REPORT INFORMATION
  Report Type: Spontaneous
  Country: FR (occurrence: FR)
  Receive Date: 20130729
  Receipt Date: 20130729
  Transmission Date: 20140515
  Serious: Yes (Hospitalization)
  Sender: FDA-Public Use
  Company Number: FR-TEVA-420515ISR

PATIENT
  Age: 87 Year
  Sex: Male

DRUGS (7)
  1. FUROSEMIDE TEVA 40 MG [Suspect]
     Dosage: 120 MILLIGRAM DAILY; STARTED SEVERAL YEARS AGO (2 ON MORNING AND 1 AT MIDDAY)
     Route: 048
     Dates: end: 20130610
  2. AMLODIPINE [Concomitant]
  3. LOSARTAN [Concomitant]
  4. COUMADINE 2 MG [Concomitant]
  5. PRAVASTATINE 20 MG [Concomitant]
  6. ADENURIC [Concomitant]
  7. DOLIPRANE [Concomitant]

REACTIONS (5)
  - Fall [Recovering/Resolving]
  - Cardiac failure [Recovering/Resolving]
  - Bronchitis [Recovering/Resolving]
  - Productive cough [Recovering/Resolving]
  - Oedema peripheral [Recovering/Resolving]
